FAERS Safety Report 7771829-7 (Version None)
Quarter: 2011Q3

REPORT INFORMATION
  Report Type: 
  Country: None (occurrence: None)
  Receive Date: 20110922
  Receipt Date: 20110916
  Transmission Date: 20111222
  Serious: Yes (Hospitalization)
  Sender: FDA-Public Use
  Company Number: BR-US-EMD SERONO, INC.-7081831

PATIENT
  Sex: Female

DRUGS (2)
  1. RANITIDINE [Concomitant]
  2. SAIZEN [Suspect]
     Indication: GROWTH HORMONE DEFICIENCY
     Dates: start: 20110815, end: 20110818

REACTIONS (3)
  - HEPATITIS [None]
  - GASTRITIS [None]
  - PNEUMONIA [None]
